FAERS Safety Report 7826799-X (Version None)
Quarter: 2011Q4

REPORT INFORMATION
  Report Type: 
  Country: None (occurrence: None)
  Receive Date: 20111020
  Receipt Date: 20111010
  Transmission Date: 20120403
  Serious: Yes (Hospitalization)
  Sender: FDA-Public Use
  Company Number: FR-UCBSA-041593

PATIENT
  Age: 74 Year
  Sex: Female
  Weight: 78 kg

DRUGS (8)
  1. PANTOPRAZOLE SODIUM [Concomitant]
  2. VOLTAREN [Concomitant]
  3. ACETAMINOPHEN [Concomitant]
     Dosage: DAILY DOSE: 4 UNITS
  4. CIMZIA [Suspect]
     Indication: RHEUMATOID ARTHRITIS
     Route: 058
     Dates: start: 20110601, end: 20110901
  5. ACETAMINOPHEN [Concomitant]
  6. TRAMADOL HCL [Concomitant]
     Dates: end: 20110901
  7. PREDNISONE [Concomitant]
  8. VOLTAREN [Concomitant]

REACTIONS (5)
  - PAIN IN EXTREMITY [None]
  - ARTHRALGIA [None]
  - PHLEBITIS SUPERFICIAL [None]
  - LEUKOCYTOCLASTIC VASCULITIS [None]
  - PURPURA [None]
